FAERS Safety Report 7237352-3 (Version None)
Quarter: 2011Q1

REPORT INFORMATION
  Report Type: 
  Country: None (occurrence: None)
  Receive Date: 20110121
  Receipt Date: 20110113
  Transmission Date: 20110831
  Serious: Yes (Hospitalization, Other)
  Sender: FDA-Public Use
  Company Number: US-ASTRAZENECA-2006UW09856

PATIENT
  Age: 17088 Day
  Sex: Female
  Weight: 89.8 kg

DRUGS (26)
  1. SEROQUEL [Suspect]
     Indication: BIPOLAR I DISORDER
     Route: 048
     Dates: start: 20010101, end: 20040101
  2. GEODON [Concomitant]
     Route: 048
     Dates: start: 20050101, end: 20060101
  3. OLANZAPINE [Concomitant]
     Route: 048
     Dates: start: 19980101, end: 19980101
  4. AMBIEN [Concomitant]
     Indication: INSOMNIA
     Dosage: 5-10 MG
     Route: 048
  5. SEROQUEL [Suspect]
     Indication: DEPRESSION
     Route: 048
     Dates: start: 20010101, end: 20040101
  6. CELEXA [Concomitant]
     Route: 048
     Dates: start: 20070101
  7. HALOPERIDOL LACTATE [Concomitant]
  8. BENTYL [Concomitant]
     Route: 048
  9. NAPROSYN [Concomitant]
  10. SEROQUEL [Suspect]
     Indication: SLEEP DISORDER
     Route: 048
     Dates: start: 20010101, end: 20040101
  11. SEROQUEL [Suspect]
     Dosage: 50-200 MG
     Route: 048
     Dates: start: 20030222
  12. WELLBUTRIN [Concomitant]
     Route: 048
     Dates: start: 19930101
  13. LAMICTAL [Concomitant]
     Dates: start: 20051229
  14. DEPAKOTE [Concomitant]
     Route: 048
     Dates: start: 19930101
  15. COGENTIN [Concomitant]
  16. ATIVAN [Concomitant]
     Dosage: 1-2 MG
     Route: 030
  17. PAXIL CR [Concomitant]
     Dosage: 12.5-50 MG
  18. SEROQUEL [Suspect]
     Dosage: 50-200 MG
     Route: 048
     Dates: start: 20030222
  19. ABILIFY [Concomitant]
     Route: 048
     Dates: start: 20040101, end: 20050101
  20. STELAZINE [Concomitant]
     Dosage: 1 MG - 2 MG
     Route: 048
     Dates: start: 19860101, end: 20010101
  21. LITHIUM [Concomitant]
     Route: 048
     Dates: start: 20050501
  22. KLONOPIN [Concomitant]
     Dates: start: 20051229
  23. TYLENOL-500 [Concomitant]
     Indication: PAIN
     Dosage: 325-650 MG
     Route: 048
  24. SEROQUEL [Suspect]
     Dosage: 50-200 MG
     Route: 048
     Dates: start: 20030222
  25. SYNTHROID [Concomitant]
  26. AZMACORT [Concomitant]

REACTIONS (16)
  - SUICIDE ATTEMPT [None]
  - HEPATIC ENZYME INCREASED [None]
  - GASTRIC DISORDER [None]
  - ARTHRITIS [None]
  - GALLBLADDER DISORDER [None]
  - BIPOLAR I DISORDER [None]
  - BLOOD CHOLESTEROL INCREASED [None]
  - HEPATIC STEATOSIS [None]
  - LIVER DISORDER [None]
  - PSYCHOTIC DISORDER [None]
  - BLOOD TRIGLYCERIDES INCREASED [None]
  - DIABETIC KETOACIDOSIS [None]
  - OVERDOSE [None]
  - OBESITY [None]
  - DIABETES MELLITUS [None]
  - MENTAL DISORDER [None]
